FAERS Safety Report 14685686 (Version 2)
Quarter: 2018Q2

REPORT INFORMATION
  Report Type: Report from Study
  Country: US (occurrence: US)
  Receive Date: 20180327
  Receipt Date: 20180430
  Transmission Date: 20180711
  Serious: Yes (Hospitalization)
  Sender: FDA-Public Use
  Company Number: US-JNJFOC-20180239954

PATIENT
  Age: 87 Year
  Sex: Male

DRUGS (3)
  1. IMBRUVICA [Suspect]
     Active Substance: IBRUTINIB
     Indication: MYELOFIBROSIS
     Route: 048
     Dates: start: 20170621, end: 20180215
  2. DILANTIN [Concomitant]
     Active Substance: PHENYTOIN
  3. IMBRUVICA [Suspect]
     Active Substance: IBRUTINIB
     Indication: MYELOFIBROSIS
     Route: 048
     Dates: start: 20150204

REACTIONS (5)
  - Cerebrovascular accident [Unknown]
  - Seizure [Not Recovered/Not Resolved]
  - Wrong technique in product usage process [Unknown]
  - Off label use [Unknown]
  - Coma [Unknown]

NARRATIVE: CASE EVENT DATE: 20180215
